FAERS Safety Report 5745661-X (Version None)
Quarter: 2008Q2

REPORT INFORMATION
  Report Type: 
  Country: None (occurrence: None)
  Receive Date: 20080521
  Receipt Date: 20080516
  Transmission Date: 20081010
  Serious: Yes (Other)
  Sender: FDA-Public Use
  Company Number: GB-ABBOTT-08P-167-0452132-00

PATIENT
  Age: 79 Year
  Sex: Female

DRUGS (1)
  1. KLARICID [Suspect]
     Indication: PNEUMONIA
     Dates: start: 20080401, end: 20080401

REACTIONS (1)
  - PHLEBITIS [None]
